FAERS Safety Report 8649604 (Version 2)
Quarter: 2012Q4

REPORT INFORMATION
  Report Type: 
  Country: US (occurrence: US)
  Receive Date: 20120705
  Receipt Date: 20120829
  Transmission Date: 20130627
  Serious: Yes (Hospitalization, Other)
  Sender: FDA-Public Use
  Company Number: US-BRISTOL-MYERS SQUIBB COMPANY-16712986

PATIENT
  Age: 4 Year
  Sex: Female

DRUGS (3)
  1. DIDANOSINE [Suspect]
     Indication: HIV INFECTION
     Dosage: 31Jul00-5nov07
     Route: 048
     Dates: start: 20000731, end: 2012
  2. STAVUDINE [Concomitant]
  3. NELFINAVIR [Concomitant]

REACTIONS (3)
  - Abdominal pain [Unknown]
  - Ascites [Unknown]
  - Nodular regenerative hyperplasia [Unknown]
